FAERS Safety Report 18490228 (Version 1)
Quarter: 2020Q4

REPORT INFORMATION
  Report Type: Spontaneous
  Country: US (occurrence: US)
  Receive Date: 20201111
  Receipt Date: 20201111
  Transmission Date: 20210114
  Serious: Yes (Other)
  Sender: FDA-Public Use
  Company Number: US-BAYER-2020-236821

PATIENT
  Age: 48 Year
  Sex: Male

DRUGS (1)
  1. BETASERON [Suspect]
     Active Substance: INTERFERON BETA-1B
     Indication: MULTIPLE SCLEROSIS
     Dosage: 0.062 MG

REACTIONS (6)
  - Multiple sclerosis relapse [None]
  - Visual impairment [None]
  - Injection site reaction [None]
  - Feeling hot [None]
  - Optic neuritis [None]
  - Gait disturbance [None]

NARRATIVE: CASE EVENT DATE: 2010
